FAERS Safety Report 6625710-7 (Version None)
Quarter: 2010Q1

REPORT INFORMATION
  Report Type: 
  Country: None (occurrence: None)
  Receive Date: 20100310
  Receipt Date: 20100305
  Transmission Date: 20100710
  Serious: Yes (Other)
  Sender: FDA-Public Use
  Company Number: BR-BRACCO-000033

PATIENT
  Age: 50 Year
  Sex: Female

DRUGS (1)
  1. IOPAMIDOL [Suspect]
     Indication: DIAGNOSTIC PROCEDURE

REACTIONS (2)
  - BRAIN OEDEMA [None]
  - MYELOPATHY [None]
